FAERS Safety Report 4372845-8 (Version None)
Quarter: 2004Q2

REPORT INFORMATION
  Report Type: 
  Country: None (occurrence: None)
  Receive Date: 20040603
  Receipt Date: 20040513
  Transmission Date: 20050107
  Serious: Yes (Death)
  Sender: FDA-Public Use
  Company Number: 3286IA

PATIENT
  Age: 65 Year
  Sex: Male
  Weight: 125 kg

DRUGS (8)
  1. COLGATE [Suspect]
     Indication: DENTAL CARIES
     Dosage: 2X/DAY  ORAL
     Route: 048
     Dates: start: 20030220, end: 20030717
  2. COLGATE [Suspect]
     Indication: DENTAL TREATMENT
     Dosage: 2X/DAY  ORAL
     Route: 048
     Dates: start: 20030220, end: 20030717
  3. COLGATE [Suspect]
     Indication: GINGIVITIS
     Dosage: 2X/DAY  ORAL
     Route: 048
     Dates: start: 20030220, end: 20030717
  4. ATENOLOL [Concomitant]
  5. ATORVASTATIN CALCIUM [Concomitant]
  6. ASPIRIN [Concomitant]
  7. LOSEC [Concomitant]
  8. DOTHIEPIN HYDROCHLORIDE [Concomitant]

REACTIONS (1)
  - ROAD TRAFFIC ACCIDENT [None]
